FAERS Safety Report 15756095 (Version 1)
Quarter: 2018Q4

REPORT INFORMATION
  Report Type: Report from Study
  Country: AR (occurrence: AR)
  Receive Date: 20181224
  Receipt Date: 20181224
  Transmission Date: 20190205
  Serious: Yes (Death, Hospitalization)
  Sender: FDA-Public Use
  Company Number: PHHY2018AR181895

PATIENT
  Sex: Male

DRUGS (1)
  1. ENTRESTO [Suspect]
     Active Substance: SACUBITRIL\VALSARTAN
     Indication: CARDIAC FAILURE
     Dosage: UNK
     Route: 065
     Dates: start: 201809

REACTIONS (6)
  - Seizure [Unknown]
  - Infarction [Fatal]
  - Respiratory arrest [Fatal]
  - Angiopathy [Not Recovered/Not Resolved]
  - Depression [Not Recovered/Not Resolved]
  - Sciatica [Not Recovered/Not Resolved]
